FAERS Safety Report 4286741-8 (Version None)
Quarter: 2004Q1

REPORT INFORMATION
  Report Type: 
  Country: None (occurrence: None)
  Receive Date: 20040206
  Receipt Date: 20040115
  Transmission Date: 20041129
  Serious: Yes (Hospitalization)
  Sender: FDA-Public Use
  Company Number: HU-GLAXOSMITHKLINE-B0320033A

PATIENT
  Age: 64 Year
  Sex: Male
  Weight: 65 kg

DRUGS (1)
  1. FLUTICASONE PROPIONATE [Suspect]
     Indication: CHRONIC OBSTRUCTIVE AIRWAYS DISEASE
     Dosage: 500MCG TWICE PER DAY
     Route: 055
     Dates: start: 20010921

REACTIONS (5)
  - BRONCHITIS ACUTE [None]
  - COUGH [None]
  - DYSPNOEA [None]
  - PYREXIA [None]
  - SPUTUM DISCOLOURED [None]
